FAERS Safety Report 6945945-3 (Version None)
Quarter: 2010Q3

REPORT INFORMATION
  Report Type: 
  Country: None (occurrence: None)
  Receive Date: 20100827
  Receipt Date: 20100823
  Transmission Date: 20110219
  Serious: Yes (Hospitalization)
  Sender: FDA-Public Use
  Company Number: US-CEPHALON-2010004483

PATIENT
  Age: 70 Year
  Sex: Female

DRUGS (5)
  1. AMRIX [Suspect]
  2. OXYCODONE [Suspect]
  3. TRAMADOL HCL [Suspect]
  4. DIPHENHYDRAMINE HCL [Suspect]
  5. ALPRAZOLAM [Suspect]

REACTIONS (1)
  - ROAD TRAFFIC ACCIDENT [None]
